FAERS Safety Report 23312285 (Version 1)
Quarter: 2023Q4

REPORT INFORMATION
  Report Type: Spontaneous
  Country: US (occurrence: US)
  Receive Date: 20231219
  Receipt Date: 20231219
  Transmission Date: 20240109
  Serious: No
  Sender: FDA-Public Use
  Company Number: US-ALVOGEN-2023091545

PATIENT
  Sex: Female

DRUGS (1)
  1. FENTANYL [Suspect]
     Active Substance: FENTANYL\FENTANYL CITRATE
     Indication: Product used for unknown indication
     Dosage: STRENGTH: 75 MCG/HR?EXPIRATION DATE: UU-MAR-2026?MANUFACTURING DATE: 14-MAR-2023
     Route: 065

REACTIONS (2)
  - Device malfunction [Unknown]
  - Device adhesion issue [Unknown]
